FAERS Safety Report 13911972 (Version 2)
Quarter: 2017Q3

REPORT INFORMATION
  Report Type: Spontaneous
  Country: US (occurrence: US)
  Receive Date: 20170828
  Receipt Date: 20170914
  Transmission Date: 20171127
  Serious: No
  Sender: FDA-Public Use
  Company Number: US-ASTRAZENECA-2017SE86156

PATIENT
  Sex: Female
  Weight: 78 kg

DRUGS (2)
  1. TUDORZA PRESSAIR [Suspect]
     Active Substance: ACLIDINIUM BROMIDE
     Route: 055
     Dates: end: 20170818
  2. TUDORZA PRESSAIR [Suspect]
     Active Substance: ACLIDINIUM BROMIDE
     Route: 055
     Dates: start: 2015

REACTIONS (5)
  - Drug dose omission [Unknown]
  - Product quality issue [Unknown]
  - Intentional product misuse [Unknown]
  - Cough [Unknown]
  - Off label use [Unknown]
